FAERS Safety Report 16967919 (Version 1)
Quarter: 2019Q4

REPORT INFORMATION
  Report Type: Spontaneous
  Country: CH (occurrence: CH)
  Receive Date: 20191028
  Receipt Date: 20191028
  Transmission Date: 20200122
  Serious: Yes (Other)
  Sender: FDA-Public Use
  Company Number: CH-009507513-1910CHE014111

PATIENT
  Age: 57 Year
  Sex: Female

DRUGS (9)
  1. KEYTRUDA [Suspect]
     Active Substance: PEMBROLIZUMAB
     Dosage: IN TOTAL
     Route: 042
     Dates: start: 20190724, end: 20190724
  2. KEYTRUDA [Suspect]
     Active Substance: PEMBROLIZUMAB
     Indication: NON-SMALL CELL LUNG CANCER
     Dosage: IN TOTAL
     Route: 042
     Dates: start: 20190703, end: 20190703
  3. ALIMTA [Suspect]
     Active Substance: PEMETREXED DISODIUM
     Indication: NON-SMALL CELL LUNG CANCER
     Dosage: IN TOTAL
     Route: 042
     Dates: start: 20190703, end: 20190703
  4. CARBOPLATIN. [Suspect]
     Active Substance: CARBOPLATIN
     Indication: NON-SMALL CELL LUNG CANCER
     Dosage: IN TOTAL
     Route: 042
     Dates: start: 20190703, end: 20190703
  5. CARBOPLATIN. [Suspect]
     Active Substance: CARBOPLATIN
     Dosage: IN TOTAL
     Route: 042
     Dates: start: 20190724, end: 20190724
  6. ALIMTA [Suspect]
     Active Substance: PEMETREXED DISODIUM
     Dosage: IN TOTAL
     Route: 042
     Dates: start: 20190724, end: 20190724
  7. ALIMTA [Suspect]
     Active Substance: PEMETREXED DISODIUM
     Dosage: IN TOTAL
     Route: 042
     Dates: start: 20190814, end: 20190814
  8. KEYTRUDA [Suspect]
     Active Substance: PEMBROLIZUMAB
     Dosage: IN TOTAL
     Route: 042
     Dates: start: 20190814, end: 20190814
  9. CARBOPLATIN. [Suspect]
     Active Substance: CARBOPLATIN
     Dosage: IN TOTAL
     Route: 042
     Dates: start: 20190814, end: 20190814

REACTIONS (8)
  - Colitis [Unknown]
  - Alanine aminotransferase increased [Not Recovered/Not Resolved]
  - Aspartate aminotransferase increased [Not Recovered/Not Resolved]
  - Pancreatitis [Unknown]
  - Hepatitis [Not Recovered/Not Resolved]
  - Blood alkaline phosphatase increased [Not Recovered/Not Resolved]
  - Gamma-glutamyltransferase increased [Not Recovered/Not Resolved]
  - Sialoadenitis [Recovered/Resolved]

NARRATIVE: CASE EVENT DATE: 20190724
